FAERS Safety Report 7913904-X (Version None)
Quarter: 2011Q4

REPORT INFORMATION
  Report Type: 
  Country: None (occurrence: None)
  Receive Date: 20111115
  Receipt Date: 20111115
  Transmission Date: 20120403
  Serious: Yes (Hospitalization, Other)
  Sender: FDA-Public Use
  Company Number: JP-PFIZER INC-2011267797

PATIENT
  Age: 30 Year
  Sex: Female

DRUGS (19)
  1. ETIZOLAM [Suspect]
     Indication: DEPRESSION
     Route: 048
  2. CLOXAZOLAM [Suspect]
     Indication: DEPRESSION
     Route: 048
  3. TANDOSPIRONE CITRATE [Suspect]
     Indication: DEPRESSION
     Route: 048
  4. PHENOBARBITAL TAB [Suspect]
     Indication: DEPRESSION
     Route: 048
  5. PHENOBARBITAL TAB [Suspect]
     Indication: DEPRESSION
     Route: 048
  6. ESTAZOLAM [Suspect]
     Indication: DEPRESSION
     Route: 048
  7. FLUNITRAZEPAM [Suspect]
     Indication: DEPRESSION
     Route: 048
  8. QUAZEPAM [Suspect]
     Indication: DEPRESSION
     Route: 048
  9. OXAZOLAM [Suspect]
     Indication: DEPRESSION
     Route: 048
  10. CLONAZEPAM [Suspect]
     Indication: DEPRESSION
     Route: 048
  11. BROMAZEPAM [Suspect]
     Indication: DEPRESSION
     Route: 048
  12. DIAZEPAM [Suspect]
     Indication: DEPRESSION
     Route: 048
  13. FLUTAZOLAM [Suspect]
     Indication: DEPRESSION
     Route: 048
  14. CLOTIAZEPAM [Suspect]
     Indication: DEPRESSION
     Route: 048
  15. ALPRAZOLAM [Suspect]
     Indication: DEPRESSION
     Route: 048
  16. CLOMIPRAMINE HCL [Suspect]
     Indication: DEPRESSION
     Route: 048
  17. CHLORDIAZEPOXIDE [Suspect]
     Indication: DEPRESSION
     Route: 048
  18. MEDAZEPAM [Suspect]
     Indication: DEPRESSION
  19. MEXAZOLAM [Suspect]
     Indication: DEPRESSION
     Route: 048

REACTIONS (3)
  - ALTERED STATE OF CONSCIOUSNESS [None]
  - INTENTIONAL OVERDOSE [None]
  - DYSPNOEA [None]
